FAERS Safety Report 18035343 (Version 1)
Quarter: 2020Q3

REPORT INFORMATION
  Report Type: Spontaneous
  Country: US (occurrence: US)
  Receive Date: 20200716
  Receipt Date: 20200716
  Transmission Date: 20201103
  Serious: Yes (Hospitalization)
  Sender: FDA-Public Use
  Company Number: None

PATIENT
  Age: 44 Year
  Sex: Female

DRUGS (27)
  1. CLOPIDOGREL [Concomitant]
     Active Substance: CLOPIDOGREL BISULFATE
  2. FREESTYLE KIT SENSOR [Concomitant]
  3. INSULIN [Concomitant]
     Active Substance: INSULIN NOS
  4. ONDANSETRON [Concomitant]
     Active Substance: ONDANSETRON
  5. OXYCODONE [Concomitant]
     Active Substance: OXYCODONE
  6. AMLODIPINE [Concomitant]
     Active Substance: AMLODIPINE BESYLATE
  7. LISINOPRIL. [Concomitant]
     Active Substance: LISINOPRIL
  8. MICROLET MIS LANCETS [Concomitant]
  9. PANTOPRAZOLE [Concomitant]
     Active Substance: PANTOPRAZOLE
  10. METRONIDAZOL [Concomitant]
     Active Substance: METRONIDAZOLE
  11. CARVEDILOL. [Concomitant]
     Active Substance: CARVEDILOL
  12. DULOXETINE. [Concomitant]
     Active Substance: DULOXETINE
  13. LEVOFLOXACIN. [Concomitant]
     Active Substance: LEVOFLOXACIN
  14. LANTUS [Concomitant]
     Active Substance: INSULIN GLARGINE
  15. MECLIZINE [Concomitant]
     Active Substance: MECLIZINE HYDROCHLORIDE
  16. CONTOUR TES NECT [Concomitant]
  17. GABAPENTIN. [Concomitant]
     Active Substance: GABAPENTIN
  18. DOK PLUS [Concomitant]
     Active Substance: DOCUSATE SODIUM\SENNOSIDES
  19. PRED [Concomitant]
     Active Substance: PREDNISONE
  20. PROMETHEGAN [Concomitant]
     Active Substance: PROMETHAZINE HYDROCHLORIDE
  21. PRALUENT [Suspect]
     Active Substance: ALIROCUMAB
     Indication: TYPE IIA HYPERLIPIDAEMIA
     Route: 058
     Dates: start: 201902
  22. SOLIFENACIN [Concomitant]
     Active Substance: SOLIFENACIN
  23. ASPIRIN. [Concomitant]
     Active Substance: ASPIRIN
  24. FEROSUL [Concomitant]
     Active Substance: FERROUS SULFATE
  25. METHOCARBAM [Concomitant]
     Active Substance: METHOCARBAMOL
  26. ROSUVASTATIN. [Concomitant]
     Active Substance: ROSUVASTATIN
  27. FLUCONAZOLE. [Concomitant]
     Active Substance: FLUCONAZOLE

REACTIONS (2)
  - Impaired gastric emptying [None]
  - Hypertension [None]

NARRATIVE: CASE EVENT DATE: 20200704
